FAERS Safety Report 7377434-9 (Version None)
Quarter: 2011Q1

REPORT INFORMATION
  Report Type: 
  Country: None (occurrence: None)
  Receive Date: 20110328
  Receipt Date: 20110315
  Transmission Date: 20110831
  Serious: Yes (Hospitalization)
  Sender: FDA-Public Use
  Company Number: US-JNJFOC-20050500895

PATIENT
  Sex: Female
  Weight: 121.11 kg

DRUGS (15)
  1. ORTHO TRI-CYCLEN LO [Suspect]
     Dosage: SECOND WEEK
     Route: 048
  2. GLUCOPHAGE [Concomitant]
     Indication: POLYCYSTIC OVARIES
  3. ORTHO TRI-CYCLEN LO [Suspect]
     Indication: CONTRACEPTION
     Route: 048
  4. UNKNOWN MEDICATION [Concomitant]
     Indication: WEIGHT DECREASED
     Route: 048
  5. ORTHO TRI-CYCLEN LO [Suspect]
     Indication: MENSTRUATION IRREGULAR
     Route: 048
  6. ORTHO TRI-CYCLEN LO [Suspect]
     Dosage: SECOND WEEK
     Route: 048
  7. GLUCOPHAGE [Concomitant]
     Indication: GLUCOSE TOLERANCE IMPAIRED
  8. ORTHO TRI-CYCLEN LO [Suspect]
     Dosage: SECOND WEEK
     Route: 048
  9. TRICOR [Concomitant]
     Indication: BLOOD TRIGLYCERIDES INCREASED
  10. GLUCOPHAGE [Concomitant]
  11. GLUCOPHAGE [Concomitant]
  12. ORTHO TRI-CYCLEN LO [Suspect]
     Indication: POLYCYSTIC OVARIES
     Route: 048
  13. ZOLOFT [Concomitant]
     Route: 065
  14. GLUCOPHAGE [Concomitant]
  15. GLUCOPHAGE [Concomitant]

REACTIONS (9)
  - INSOMNIA [None]
  - MALAISE [None]
  - SKIN DISCOLOURATION [None]
  - DYSFUNCTIONAL UTERINE BLEEDING [None]
  - PANIC ATTACK [None]
  - MIGRAINE [None]
  - OFF LABEL USE [None]
  - DEPRESSION [None]
  - SKIN EXFOLIATION [None]
